FAERS Safety Report 19986363 (Version 1)
Quarter: 2021Q4

REPORT INFORMATION
  Report Type: Spontaneous
  Country: US (occurrence: US)
  Receive Date: 20211022
  Receipt Date: 20211022
  Transmission Date: 20220303
  Serious: Yes (Hospitalization, Other)
  Sender: FDA-Public Use
  Company Number: US-SA-SAC20211018001199

PATIENT
  Age: 52 Year
  Sex: Female

DRUGS (13)
  1. KEVZARA [Suspect]
     Active Substance: SARILUMAB
     Indication: Rheumatoid arthritis
     Dosage: 200 MG, QOW
     Route: 058
     Dates: start: 2020, end: 202107
  2. ZOMIG [Concomitant]
     Active Substance: ZOLMITRIPTAN
  3. AIMOVIG [Concomitant]
     Active Substance: ERENUMAB-AOOE
  4. ALPHA LIPOIC ACID [Concomitant]
     Active Substance: .ALPHA.-LIPOIC ACID
  5. VITAMIN D3 [Concomitant]
     Active Substance: CHOLECALCIFEROL
  6. VITAMIN B12 [Concomitant]
     Active Substance: CYANOCOBALAMIN
  7. WARFARIN SODIUM [Concomitant]
     Active Substance: WARFARIN SODIUM
  8. ASPIRIN [Concomitant]
     Active Substance: ASPIRIN
  9. PRISTIQ EXTENDED-RELEASE [Concomitant]
     Active Substance: DESVENLAFAXINE SUCCINATE
  10. RAYOS [Concomitant]
     Active Substance: PREDNISONE
  11. METHOTREXATE [Concomitant]
     Active Substance: METHOTREXATE
  12. LIPITOR [Concomitant]
     Active Substance: ATORVASTATIN CALCIUM
  13. UBRELVY [Concomitant]
     Active Substance: UBROGEPANT

REACTIONS (10)
  - Septic shock [Unknown]
  - Nephrolithiasis [Unknown]
  - Pulmonary embolism [Unknown]
  - Cardiac arrest [Unknown]
  - Rheumatoid arthritis [Unknown]
  - Red blood cell count decreased [Unknown]
  - Platelet count decreased [Unknown]
  - Blood cholesterol increased [Unknown]
  - White blood cell count decreased [Unknown]
  - Product dose omission issue [Unknown]

NARRATIVE: CASE EVENT DATE: 20210101
